FAERS Safety Report 5420608-4 (Version None)
Quarter: 2007Q3

REPORT INFORMATION
  Report Type: 
  Country: None (occurrence: None)
  Receive Date: 20070821
  Receipt Date: 20070817
  Transmission Date: 20080115
  Serious: Yes (Death, Hospitalization)
  Sender: FDA-Public Use
  Company Number: GBWYE189017AUG07

PATIENT

DRUGS (2)
  1. GEMTUZUMAB OZOGAMICIN [Suspect]
     Dosage: UNKNOWN
     Dates: start: 20070806, end: 20070810
  2. CYTARABINE [Suspect]
     Dosage: UNKNOWN
     Dates: start: 20070806, end: 20070810

REACTIONS (2)
  - RENAL FAILURE [None]
  - SEPSIS [None]
